FAERS Safety Report 23685160 (Version 2)
Quarter: 2024Q2

REPORT INFORMATION
  Report Type: Spontaneous
  Country: US (occurrence: US)
  Receive Date: 20240329
  Receipt Date: 20240607
  Transmission Date: 20240715
  Serious: No
  Sender: FDA-Public Use
  Company Number: US-AMGEN-USASP2024060683

PATIENT

DRUGS (28)
  1. INFLIXIMAB [Suspect]
     Active Substance: INFLIXIMAB
     Indication: Amyloidosis
     Dosage: UNK
     Route: 065
  2. INFLIXIMAB [Suspect]
     Active Substance: INFLIXIMAB
     Indication: Sarcoidosis
  3. INFLIXIMAB [Suspect]
     Active Substance: INFLIXIMAB
     Indication: Behcet^s syndrome
  4. INFLIXIMAB [Suspect]
     Active Substance: INFLIXIMAB
     Indication: Acute febrile neutrophilic dermatosis
  5. INFLIXIMAB [Suspect]
     Active Substance: INFLIXIMAB
     Indication: B-cell lymphoma
  6. INFLIXIMAB [Suspect]
     Active Substance: INFLIXIMAB
     Indication: T-cell lymphoma
  7. INFLIXIMAB [Suspect]
     Active Substance: INFLIXIMAB
     Indication: Kaposi^s sarcoma
  8. INFLIXIMAB [Suspect]
     Active Substance: INFLIXIMAB
     Indication: Autoimmune enteropathy
  9. INFLIXIMAB [Suspect]
     Active Substance: INFLIXIMAB
     Indication: Angioedema
  10. INFLIXIMAB [Suspect]
     Active Substance: INFLIXIMAB
     Indication: Paroxysmal nocturnal haemoglobinuria
  11. INFLIXIMAB [Suspect]
     Active Substance: INFLIXIMAB
     Indication: Vasculitis
  12. INFLIXIMAB [Suspect]
     Active Substance: INFLIXIMAB
     Indication: Vascular wall hypertrophy
  13. INFLIXIMAB [Suspect]
     Active Substance: INFLIXIMAB
     Indication: Short-chain acyl-coenzyme A dehydrogenase deficiency
  14. INFLIXIMAB [Suspect]
     Active Substance: INFLIXIMAB
     Indication: Diversion colitis
  15. INFLIXIMAB [Suspect]
     Active Substance: INFLIXIMAB
     Indication: Infection
  16. INFLIXIMAB [Suspect]
     Active Substance: INFLIXIMAB
     Indication: Overgrowth bacterial
  17. INFLIXIMAB [Suspect]
     Active Substance: INFLIXIMAB
     Indication: Pouchitis
  18. INFLIXIMAB [Suspect]
     Active Substance: INFLIXIMAB
     Indication: Juvenile polyposis syndrome
  19. INFLIXIMAB [Suspect]
     Active Substance: INFLIXIMAB
     Indication: Activated PI3 kinase delta syndrome
  20. INFLIXIMAB [Suspect]
     Active Substance: INFLIXIMAB
     Indication: CTLA4 deficiency
  21. INFLIXIMAB [Suspect]
     Active Substance: INFLIXIMAB
     Indication: Eosinophilic oesophagitis
  22. INFLIXIMAB [Suspect]
     Active Substance: INFLIXIMAB
     Indication: Colitis ischaemic
  23. INFLIXIMAB [Suspect]
     Active Substance: INFLIXIMAB
     Indication: Colitis
  24. INFLIXIMAB [Suspect]
     Active Substance: INFLIXIMAB
     Indication: Immune-mediated oesophagitis
  25. VEDOLIZUMAB [Concomitant]
     Active Substance: VEDOLIZUMAB
     Dosage: UNK
     Route: 065
  26. ADALIMUMAB [Concomitant]
     Active Substance: ADALIMUMAB\ISOPROPYL ALCOHOL
     Dosage: UNK
     Route: 065
  27. USTEKINUMAB [Concomitant]
     Active Substance: USTEKINUMAB
     Dosage: UNK
     Route: 065
  28. CERTOLIZUMAB [Concomitant]
     Active Substance: CERTOLIZUMAB
     Dosage: UNK
     Route: 065

REACTIONS (2)
  - Adverse event [Unknown]
  - Off label use [Unknown]
